FAERS Safety Report 7246947-2 (Version None)
Quarter: 2011Q1

REPORT INFORMATION
  Report Type: 
  Country: None (occurrence: None)
  Receive Date: 20110127
  Receipt Date: 20110124
  Transmission Date: 20110831
  Serious: Yes (Death, Hospitalization, Other)
  Sender: FDA-Public Use
  Company Number: JP-BAYER-201014742BYL

PATIENT
  Sex: Male
  Weight: 49 kg

DRUGS (8)
  1. BLOSTAR M [Concomitant]
     Indication: GASTRIC ULCER
     Dosage: DAILY DOSE 40 MG
     Route: 048
     Dates: start: 20040209, end: 20100901
  2. NEXAVAR [Suspect]
     Dosage: 400MG DAILY DOSE
     Route: 048
     Dates: start: 20100610, end: 20101007
  3. NEXAVAR [Suspect]
     Dosage: 400MG DAILY DOSE
     Route: 048
     Dates: start: 20100402, end: 20100510
  4. PERDIPINE-LA [Concomitant]
     Indication: HYPERTENSION
     Dosage: DAILY DOSE 40 MG
     Route: 048
     Dates: start: 20040204
  5. NU-LOTAN [Concomitant]
     Indication: HYPERTENSION
     Dosage: DAILY DOSE 50 MG
     Route: 048
     Dates: start: 20040209
  6. ASPIRIN [Suspect]
     Dosage: DAILY DOSE 100 MG
     Route: 048
     Dates: start: 20040209, end: 20101007
  7. NEXAVAR [Suspect]
     Indication: HEPATIC NEOPLASM MALIGNANT
     Dosage: 800MG DAILY DOSE
     Route: 048
     Dates: start: 20100308, end: 20100402
  8. UFT [Concomitant]
     Dosage: DAILY DOSE 300 MG
     Route: 048
     Dates: start: 20081009, end: 20100302

REACTIONS (5)
  - HEPATIC NEOPLASM MALIGNANT [None]
  - ANAEMIA [None]
  - DIARRHOEA [None]
  - GASTRIC ULCER [None]
  - ASCITES [None]
